FAERS Safety Report 6529703-X (Version None)
Quarter: 2010Q1

REPORT INFORMATION
  Report Type: 
  Country: None (occurrence: None)
  Receive Date: 20100107
  Receipt Date: 20091230
  Transmission Date: 20100710
  Serious: Yes (Other)
  Sender: FDA-Public Use
  Company Number: GB-PFIZER INC-2009315688

PATIENT
  Age: 64 Year
  Sex: Female

DRUGS (24)
  1. PROVERA [Suspect]
     Indication: MENOPAUSE
     Dosage: 2.5 MG, UNK
     Dates: start: 19850101, end: 20070801
  2. MEDROXYPROGESTERONE AND MEDROXYPROGESTERONE ACETATE [Suspect]
     Dosage: UNK
     Dates: end: 20070326
  3. ESTRADIOL AND ESTRADIOL CIPIONATE [Suspect]
     Indication: MENOPAUSE
     Dosage: UNK
     Dates: start: 19850101
  4. ESTRADIOL AND ESTRADIOL CIPIONATE [Suspect]
     Dosage: 2 MG, UNK
     Dates: start: 20010404, end: 20010601
  5. ESTRADIOL AND ESTRADIOL CIPIONATE [Suspect]
     Dosage: UNK
     Dates: end: 20040923
  6. ESTRADIOL AND ESTRADIOL CIPIONATE [Suspect]
     Dosage: UNK
     Dates: start: 20061108, end: 20070801
  7. ESTALIS SEQUI [Suspect]
     Indication: MENOPAUSE
     Dosage: 14 MG, UNK
     Route: 062
     Dates: start: 20010706, end: 20050501
  8. TESTOSTERONE [Suspect]
     Indication: MENOPAUSE
     Dosage: UNK
     Dates: start: 20060810, end: 20070801
  9. ESTRATEST [Suspect]
     Indication: MENOPAUSE
     Dosage: 1.25 MG, UNK
     Dates: start: 20001227, end: 20070801
  10. DYAZIDE [Suspect]
     Indication: MENIERE'S DISEASE
     Dosage: UNK
     Dates: start: 20030101
  11. INDERAL [Suspect]
     Indication: CARDIAC DISORDER
     Dosage: UNK
     Dates: start: 20030101
  12. INDERAL [Suspect]
     Indication: MIGRAINE
  13. ACYCLOVIR [Concomitant]
     Dosage: UNK
     Dates: start: 20080101
  14. ACETYLSALICYLIC ACID [Concomitant]
     Dosage: UNK
     Dates: start: 20060101
  15. CARDIZEM [Concomitant]
  16. CARISOPRODOL [Concomitant]
     Dosage: UNK
     Dates: start: 19800101, end: 20080101
  17. CARISOPRODOL [Concomitant]
     Dosage: UNK
     Dates: start: 19900101, end: 20000101
  18. FENTANYL [Concomitant]
     Dosage: UNK
     Dates: start: 20090601
  19. HYDROCODONE [Concomitant]
     Dosage: UNK
     Dates: start: 20060101, end: 20090101
  20. LOVASTATIN [Concomitant]
     Dosage: UNK
     Dates: start: 20030101
  21. OXYCODONE [Concomitant]
     Dosage: UNK
     Dates: start: 20090301
  22. PARACETAMOL [Concomitant]
  23. PROMETHAZINE [Concomitant]
     Dosage: UNK
     Dates: start: 20030101
  24. TRAZODONE [Concomitant]
     Dosage: UNK
     Dates: start: 20080101

REACTIONS (15)
  - ANXIETY [None]
  - BLOOD CHOLESTEROL INCREASED [None]
  - BREAST CANCER [None]
  - BREAST MASS [None]
  - BREAST RECONSTRUCTION [None]
  - CARDIAC DISORDER [None]
  - CEREBROVASCULAR ACCIDENT [None]
  - DEPRESSION [None]
  - HERPES VIRUS INFECTION [None]
  - MASTECTOMY [None]
  - MENIERE'S DISEASE [None]
  - MIGRAINE [None]
  - NAUSEA [None]
  - PAIN [None]
  - TREMOR [None]
